FAERS Safety Report 7969206-9 (Version None)
Quarter: 2011Q4

REPORT INFORMATION
  Report Type: 
  Country: None (occurrence: None)
  Receive Date: 20111209
  Receipt Date: 20111202
  Transmission Date: 20120403
  Serious: Yes (Hospitalization)
  Sender: FDA-Public Use
  Company Number: AU-B.I. PHARMACEUTICALS,INC./RIDGEFIELD-2011-AU-02184AU

PATIENT
  Sex: Male

DRUGS (3)
  1. PRADAXA [Suspect]
  2. CLOPIDOGREL [Suspect]
  3. ASPIRIN [Suspect]

REACTIONS (2)
  - HAEMORRHAGE [None]
  - ROAD TRAFFIC ACCIDENT [None]
